FAERS Safety Report 7227242-4 (Version None)
Quarter: 2011Q1

REPORT INFORMATION
  Report Type: 
  Country: None (occurrence: None)
  Receive Date: 20110114
  Receipt Date: 20110106
  Transmission Date: 20110831
  Serious: Yes (Hospitalization)
  Sender: FDA-Public Use
  Company Number: A0903703A

PATIENT
  Age: 38 Year
  Sex: Male

DRUGS (3)
  1. LAMICTAL [Suspect]
     Dosage: 200MG TWICE PER DAY
     Route: 048
     Dates: start: 20070101
  2. VIMPAT [Concomitant]
  3. KEPPRA [Concomitant]

REACTIONS (3)
  - DRY SKIN [None]
  - TREATMENT NONCOMPLIANCE [None]
  - CONVULSION [None]
